FAERS Safety Report 25001527 (Version 1)
Quarter: 2025Q1

REPORT INFORMATION
  Report Type: Spontaneous
  Country: SG (occurrence: SG)
  Receive Date: 20250223
  Receipt Date: 20250223
  Transmission Date: 20250409
  Serious: Yes (Death)
  Sender: JOHNSON AND JOHNSON
  Company Number: SG-JNJFOC-20250249490

PATIENT
  Sex: Female

DRUGS (2)
  1. UPTRAVI [Suspect]
     Active Substance: SELEXIPAG
     Indication: Pulmonary arterial hypertension
     Dosage: THERAPY END DATE: -FEB-2025
     Route: 048
     Dates: start: 202405
  2. OPSUMIT [Suspect]
     Active Substance: MACITENTAN
     Indication: Pulmonary arterial hypertension
     Dosage: THERAPY END DATE: -FEB-2025
     Route: 048
     Dates: start: 202405

REACTIONS (1)
  - Pulmonary arterial hypertension [Fatal]
